FAERS Safety Report 8208268-0 (Version None)
Quarter: 2012Q1

REPORT INFORMATION
  Report Type: 
  Country: None (occurrence: None)
  Receive Date: 20120314
  Receipt Date: 20120309
  Transmission Date: 20120608
  Serious: Yes (Other)
  Sender: FDA-Public Use
  Company Number: PHHY2012DE021168

PATIENT
  Age: 72 Year
  Sex: Female

DRUGS (4)
  1. VITAMIN D [Concomitant]
     Dosage: UNK UKN, UNK
  2. MARCUMAR [Concomitant]
     Dosage: UNK UKN, UNK
  3. ZOLEDRONOC ACID [Suspect]
     Indication: OSTEOPOROSIS
     Dosage: UNK UKN, UNK
     Route: 042
     Dates: start: 20090101
  4. CALCIUM [Concomitant]
     Dosage: UNK UKN, UNK

REACTIONS (4)
  - NECROSIS [None]
  - PYREXIA [None]
  - BONE PAIN [None]
  - CHILLS [None]
